FAERS Safety Report 12491090 (Version 1)
Quarter: 2016Q2

REPORT INFORMATION
  Report Type: Spontaneous
  Country: US (occurrence: US)
  Receive Date: 20160623
  Receipt Date: 20160623
  Transmission Date: 20160815
  Serious: No
  Sender: FDA-Public Use
  Company Number: US-009507513-1606USA004466

PATIENT
  Sex: Male

DRUGS (9)
  1. PRINIVIL [Concomitant]
     Active Substance: LISINOPRIL
  2. SYLATRON [Suspect]
     Active Substance: PEGINTERFERON ALFA-2B
     Indication: GASTROINTESTINAL MELANOMA
     Dosage: USE AS DIRECTED BY PHYSICIAN
  3. ALPRAZOLAM. [Concomitant]
     Active Substance: ALPRAZOLAM
  4. SULFASALAZINE. [Concomitant]
     Active Substance: SULFASALAZINE
  5. SULFAZINE [Concomitant]
     Active Substance: SULFASALAZINE
  6. SUPREP BOWEL PREP [Concomitant]
     Active Substance: MAGNESIUM SULFATE\POTASSIUM SULFATE\SODIUM SULFATE
  7. ZOLPIDEM [Concomitant]
     Active Substance: ZOLPIDEM\ZOLPIDEM TARTRATE
  8. ACETAMINOPHEN (+) HYDROCODONE BITARTRATE [Concomitant]
     Active Substance: ACETAMINOPHEN\HYDROCODONE BITARTRATE
     Dosage: STRENGTH: 7.5-325 (UNIT UNSPECIFIED)
  9. PAROXETINE. [Concomitant]
     Active Substance: PAROXETINE

REACTIONS (1)
  - Adverse event [Unknown]
